FAERS Safety Report 10220991 (Version 1)
Quarter: 2014Q2

REPORT INFORMATION
  Report Type: Spontaneous
  Country: DE (occurrence: DE)
  Receive Date: 20140606
  Receipt Date: 20140606
  Transmission Date: 20141212
  Serious: Yes (Other)
  Sender: FDA-Public Use
  Company Number: DE-MYLANLABS-2014S1012356

PATIENT
  Age: 22 Year
  Sex: Female

DRUGS (2)
  1. LAMOTRIGIN [Suspect]
     Indication: EPILEPSY
     Dosage: 75-0-50
     Route: 048
  2. FELBAMATE [Concomitant]

REACTIONS (1)
  - Haematoma [Not Recovered/Not Resolved]
